FAERS Safety Report 24427860 (Version 1)
Quarter: 2024Q4

REPORT INFORMATION
  Report Type: Spontaneous
  Country: KR (occurrence: KR)
  Receive Date: 20241011
  Receipt Date: 20241011
  Transmission Date: 20250115
  Serious: Yes (Other)
  Sender: MEITHEAL PHARMACEUTICALS
  Company Number: KR-MEITHEAL-2024MPLIT00310

PATIENT

DRUGS (10)
  1. AMIKACIN SULFATE [Suspect]
     Active Substance: AMIKACIN SULFATE
     Indication: Mycobacterium abscessus infection
     Dosage: 15- 20 MG/KG OF BODY WEIGHT/D, 2 TO 5 WEEKS
     Route: 065
  2. IMIPENEM [Concomitant]
     Active Substance: IMIPENEM
     Dosage: 2 TO 5 WEEKS
     Route: 065
  3. TIGECYCLINE [Concomitant]
     Active Substance: TIGECYCLINE
     Route: 065
  4. AZITHROMYCIN [Concomitant]
     Active Substance: AZITHROMYCIN
     Route: 065
  5. CLARITHROMYCIN [Concomitant]
     Active Substance: CLARITHROMYCIN
     Route: 065
  6. CLOFAZIMINE [Concomitant]
     Active Substance: CLOFAZIMINE
     Route: 065
  7. LEVOFLOXACIN [Concomitant]
     Active Substance: LEVOFLOXACIN
     Route: 065
  8. MOXIFLOXACIN [Concomitant]
     Active Substance: MOXIFLOXACIN
     Route: 065
  9. LINEZOLID [Concomitant]
     Active Substance: LINEZOLID
     Route: 065
  10. RIFABUTIN [Concomitant]
     Active Substance: RIFABUTIN
     Route: 065

REACTIONS (2)
  - Fanconi syndrome acquired [Unknown]
  - Hypoacusis [Unknown]
